FAERS Safety Report 10003345 (Version 1)
Quarter: 2014Q1

REPORT INFORMATION
  Report Type: Spontaneous
  Country: DK (occurrence: FR)
  Receive Date: 20140312
  Receipt Date: 20140312
  Transmission Date: 20141002
  Serious: Yes (Hospitalization)
  Sender: FDA-Public Use
  Company Number: FR-FRI-1000060437

PATIENT
  Age: 88 Year
  Sex: Female

DRUGS (3)
  1. CITALOPRAM [Suspect]
     Route: 048
     Dates: end: 20140213
  2. PREVISCAN [Suspect]
     Route: 048
     Dates: end: 20140213
  3. DAFALGAN [Suspect]

REACTIONS (3)
  - Haematoma [Recovering/Resolving]
  - Thrombocytopenia [Recovering/Resolving]
  - International normalised ratio increased [Recovering/Resolving]
